FAERS Safety Report 9455195 (Version 2)
Quarter: 2014Q1

REPORT INFORMATION
  Report Type: Spontaneous
  Country: US (occurrence: US)
  Receive Date: 20130813
  Receipt Date: 20140219
  Transmission Date: 20141002
  Serious: No
  Sender: FDA-Public Use
  Company Number: US-BAYER-2013-093357

PATIENT
  Age: 61 Year
  Sex: Male
  Weight: 85 kg

DRUGS (12)
  1. BETASERON [Suspect]
     Dosage: UNK
  2. BETASERON [Suspect]
     Dosage: 0.25 MG, UNK
     Route: 058
     Dates: start: 20130720
  3. LISINOPRIL [Concomitant]
     Dosage: 5 MG, UNK
  4. TAMSULOSIN [Concomitant]
     Dosage: 0.4 MG, UNK
  5. BETHANECHOL [Concomitant]
     Dosage: 25 MG, UNK
  6. BACLOFEN [Concomitant]
     Dosage: 20 MG, UNK
  7. PROVIGIL [Concomitant]
     Dosage: 200 MG, UNK
  8. VITAMIN B12 [Concomitant]
     Dosage: 1000, UNK
  9. VITAMIN D3 [Concomitant]
     Dosage: 1000 U, UNK
  10. DICLOFENAC [Concomitant]
  11. CITALOPRAM [Concomitant]
  12. DIAZEPAM [Concomitant]

REACTIONS (6)
  - Influenza [Recovering/Resolving]
  - Incorrect dose administered [None]
  - Influenza like illness [None]
  - Pyrexia [None]
  - Chills [None]
  - Muscle tightness [None]
